FAERS Safety Report 21578815 (Version 16)
Quarter: 2023Q4

REPORT INFORMATION
  Report Type: Report from Study
  Country: US (occurrence: US)
  Receive Date: 20221110
  Receipt Date: 20231121
  Transmission Date: 20240109
  Serious: Yes (Hospitalization, Other)
  Sender: FDA-Public Use
  Company Number: US-XERIS PHARMACEUTICALS-2022XER00385

PATIENT
  Sex: Female

DRUGS (12)
  1. RECORLEV [Suspect]
     Active Substance: LEVOKETOCONAZOLE
     Indication: Cushing^s syndrome
     Dosage: ONE TABLET (150 MG), 2X/DAY
     Route: 048
     Dates: start: 20221006, end: 2023
  2. RECORLEV [Suspect]
     Active Substance: LEVOKETOCONAZOLE
     Dosage: ONE TABLET (150 MG), 2X/DAY
     Route: 048
     Dates: start: 2023
  3. RECORLEV [Suspect]
     Active Substance: LEVOKETOCONAZOLE
     Dosage: ONE TABLET (150 MG), 1X/DAY
     Route: 048
  4. RECORLEV [Suspect]
     Active Substance: LEVOKETOCONAZOLE
     Dosage: ONE TABLET (150 MG), 2X/DAY
     Route: 048
  5. RECORLEV [Suspect]
     Active Substance: LEVOKETOCONAZOLE
     Dosage: ONE TABLET (150 MG), 2X/DAY
     Route: 048
  6. FUROSEMIDE [Suspect]
     Active Substance: FUROSEMIDE
  7. UNSPECIFIED INGREDIENT [Concomitant]
     Active Substance: UNSPECIFIED INGREDIENT
  8. UNSPECIFIED INGREDIENT [Concomitant]
     Active Substance: UNSPECIFIED INGREDIENT
  9. NOVOLOG [Concomitant]
     Active Substance: INSULIN ASPART
  10. NOVOLIN NOS [Concomitant]
     Active Substance: INSULIN HUMAN
  11. GABAPENTIN [Concomitant]
     Active Substance: GABAPENTIN
  12. UNSPECIFIED INGREDIENT [Concomitant]
     Active Substance: UNSPECIFIED INGREDIENT

REACTIONS (37)
  - Purpura [Not Recovered/Not Resolved]
  - Hospitalisation [Recovered/Resolved]
  - Surgery [Unknown]
  - Fall [Unknown]
  - Lower limb fracture [Recovering/Resolving]
  - Ankle fracture [Unknown]
  - Hip fracture [Recovering/Resolving]
  - Constipation [Unknown]
  - Therapeutic response unexpected [Not Recovered/Not Resolved]
  - Hypersomnia [Unknown]
  - Drug ineffective [Unknown]
  - Stress [Not Recovered/Not Resolved]
  - Pain [Unknown]
  - Asthenia [Unknown]
  - Sensitivity to weather change [Not Recovered/Not Resolved]
  - Visual impairment [Not Recovered/Not Resolved]
  - Musculoskeletal stiffness [Unknown]
  - Discomfort [Unknown]
  - Skin abrasion [Not Recovered/Not Resolved]
  - Pollakiuria [Not Recovered/Not Resolved]
  - Eating disorder [Not Recovered/Not Resolved]
  - Gait disturbance [Unknown]
  - Arthralgia [Unknown]
  - Product dose omission issue [Recovered/Resolved]
  - Malaise [Not Recovered/Not Resolved]
  - Dyspnoea [Not Recovered/Not Resolved]
  - Varicella [Unknown]
  - Illness [Unknown]
  - Chemotherapy [Unknown]
  - Intentional dose omission [Not Recovered/Not Resolved]
  - Abdominal distension [Not Recovered/Not Resolved]
  - Gastritis [Unknown]
  - Urinary tract infection [Unknown]
  - Back pain [Not Recovered/Not Resolved]
  - Fatigue [Not Recovered/Not Resolved]
  - Unevaluable event [Unknown]
  - Contusion [Recovering/Resolving]

NARRATIVE: CASE EVENT DATE: 20220101
